FAERS Safety Report 10190539 (Version 3)
Quarter: 2014Q2

REPORT INFORMATION
  Report Type: Report from Study
  Country: DE (occurrence: DE)
  Receive Date: 20140523
  Receipt Date: 20140603
  Transmission Date: 20141212
  Serious: Yes (Other)
  Sender: FDA-Public Use
  Company Number: DE-ROCHE-1406152

PATIENT
  Age: 48 Year
  Sex: Male

DRUGS (8)
  1. OMALIZUMAB [Suspect]
     Indication: ASTHMA
     Route: 065
     Dates: start: 20120806
  2. OMALIZUMAB [Suspect]
     Route: 065
     Dates: start: 20130108
  3. CELESTAMINE PLUS ANTIHISTAMINIKUM [Concomitant]
  4. XUSAL [Concomitant]
  5. NOVOPULMON [Concomitant]
  6. INDACATEROL [Concomitant]
     Route: 065
     Dates: start: 20131121
  7. GLYCOPYRRONIUM BROMIDE [Concomitant]
     Route: 065
     Dates: start: 20131121
  8. BUDESONIDE [Concomitant]
     Route: 065
     Dates: start: 20131121

REACTIONS (5)
  - Anaphylactic reaction [Recovered/Resolved]
  - Asthma [Not Recovered/Not Resolved]
  - Chest discomfort [Recovered/Resolved]
  - Gastrooesophageal reflux disease [Recovering/Resolving]
  - Dyspnoea exertional [Recovered/Resolved]
